FAERS Safety Report 21926614 (Version 1)
Quarter: 2023Q1

REPORT INFORMATION
  Report Type: Spontaneous
  Country: US (occurrence: None)
  Receive Date: 20230127
  Receipt Date: 20230127
  Transmission Date: 20230418
  Serious: Yes (Hospitalization, Other)
  Sender: FDA-Public Use
  Company Number: None

PATIENT
  Age: 60 Year
  Sex: Male
  Weight: 108 kg

DRUGS (6)
  1. APIXABAN [Suspect]
     Active Substance: APIXABAN
     Indication: Protein deficiency
     Dosage: OTHER QUANTITY : 1 TABLET(S);?FREQUENCY : TWICE A DAY;?
     Route: 048
     Dates: start: 20221124, end: 20230110
  2. APIXABAN [Suspect]
     Active Substance: APIXABAN
     Indication: Deep vein thrombosis
  3. AMLODIPINE [Concomitant]
     Active Substance: AMLODIPINE BESYLATE
  4. xrtec [Concomitant]
  5. Vitamin d [Concomitant]
  6. VITAMINS [Concomitant]
     Active Substance: VITAMINS

REACTIONS (11)
  - Dyspnoea [None]
  - Chest discomfort [None]
  - Middle insomnia [None]
  - Insomnia [None]
  - Cardiac disorder [None]
  - Weight decreased [None]
  - Loss of consciousness [None]
  - Heart rate decreased [None]
  - Eye disorder [None]
  - International normalised ratio decreased [None]
  - Product substitution issue [None]

NARRATIVE: CASE EVENT DATE: 20230107
